FAERS Safety Report 7309442-8 (Version None)
Quarter: 2011Q1

REPORT INFORMATION
  Report Type: 
  Country: None (occurrence: None)
  Receive Date: 20110211
  Receipt Date: 20110203
  Transmission Date: 20110831
  Serious: Yes (Death, Hospitalization)
  Sender: FDA-Public Use
  Company Number: 2010PL000172

PATIENT
  Age: 23 Year
  Sex: Male
  Weight: 61 kg

DRUGS (6)
  1. PROMETHAZINE [Concomitant]
  2. CIMZIA [Suspect]
     Indication: CROHN'S DISEASE
     Dosage: 400 MG; SC
     Route: 058
     Dates: start: 20101020, end: 20101108
  3. PREDNISONE [Concomitant]
  4. MERCAPTOPURINE [Suspect]
     Indication: CROHN'S DISEASE
     Dates: start: 20050101, end: 20101101
  5. CALCIUM CARBONATE [Concomitant]
  6. ACETAMINOPHEN AND OXYCODONE HCL [Concomitant]

REACTIONS (25)
  - CARDIO-RESPIRATORY ARREST [None]
  - AGITATION [None]
  - CORNEAL REFLEX DECREASED [None]
  - RECTAL HAEMORRHAGE [None]
  - WEIGHT DECREASED [None]
  - NAUSEA [None]
  - DYSPNOEA [None]
  - HYPOXIA [None]
  - ACIDOSIS [None]
  - TACHYPNOEA [None]
  - HAEMOGLOBIN DECREASED [None]
  - LEUKOPENIA [None]
  - TREMOR [None]
  - POOR VENOUS ACCESS [None]
  - PULMONARY EMBOLISM [None]
  - VOMITING [None]
  - PLATELET COUNT INCREASED [None]
  - UNRESPONSIVE TO STIMULI [None]
  - SINUS TACHYCARDIA [None]
  - CYANOSIS [None]
  - CHEST DISCOMFORT [None]
  - BLOOD PRESSURE DECREASED [None]
  - LETHARGY [None]
  - BRADYCARDIA [None]
  - BLOOD GLUCOSE INCREASED [None]
